FAERS Safety Report 6180832-2 (Version None)
Quarter: 2009Q2

REPORT INFORMATION
  Report Type: 
  Country: None (occurrence: None)
  Receive Date: 20090506
  Receipt Date: 20090428
  Transmission Date: 20091009
  Serious: Yes (Hospitalization)
  Sender: FDA-Public Use
  Company Number: US-BAYER-200919368NA

PATIENT
  Age: 24 Year
  Sex: Female

DRUGS (1)
  1. MIRENA [Suspect]
     Indication: CONTRACEPTION
     Dosage: CONTINUOUS
     Route: 015
     Dates: start: 20071108, end: 20090403

REACTIONS (4)
  - ABORTION SPONTANEOUS [None]
  - FLANK PAIN [None]
  - NEPHROLITHIASIS [None]
  - PREGNANCY WITH CONTRACEPTIVE DEVICE [None]
